FAERS Safety Report 6023331-0 (Version None)
Quarter: 2008Q4

REPORT INFORMATION
  Report Type: 
  Country: None (occurrence: None)
  Receive Date: 20081230
  Receipt Date: 20081222
  Transmission Date: 20090506
  Serious: Yes (Hospitalization)
  Sender: FDA-Public Use
  Company Number: GB-ELI_LILLY_AND_COMPANY-GB200812000852

PATIENT
  Sex: Female
  Weight: 72.65 kg

DRUGS (5)
  1. BYETTA [Suspect]
     Dosage: 10 UG, 2/D
     Route: 058
     Dates: start: 20080801
  2. AMITRIPTYLINE [Concomitant]
     Dosage: 50 MG, DAILY (1/D)
     Route: 048
  3. PIZOTIFEN [Concomitant]
     Dosage: 15 MG, 2/D
     Route: 048
  4. GLICLAZIDE [Concomitant]
     Dosage: 80 MG, 4/D
     Route: 048
  5. METFORMIN HCL [Concomitant]
     Dosage: 850 MG, 3/D
     Route: 065

REACTIONS (5)
  - DRY SKIN [None]
  - HOSPITALISATION [None]
  - INJECTION SITE ERYTHEMA [None]
  - INJECTION SITE PRURITUS [None]
  - INJECTION SITE SWELLING [None]
